FAERS Safety Report 17659797 (Version 1)
Quarter: 2020Q2

REPORT INFORMATION
  Report Type: Spontaneous
  Country: US (occurrence: US)
  Receive Date: 20200410
  Receipt Date: 20200410
  Transmission Date: 20200713
  Serious: Yes (Disabling)
  Sender: FDA-Public Use
  Company Number: None

PATIENT
  Age: 16 Month
  Sex: Male
  Weight: 17.1 kg

DRUGS (3)
  1. MULTIVITAMIN, CHILDREN^S CHEWABLE [Concomitant]
  2. MONTELUKAST SODIUM CHEWABLE TABLETS 4 MG [Suspect]
     Active Substance: MONTELUKAST SODIUM
     Indication: ASTHMA
     Dosage: ?          QUANTITY:30 TABLET(S);?
     Route: 048
  3. INHALER [Concomitant]
     Active Substance: UNSPECIFIED INGREDIENT

REACTIONS (8)
  - Sensory processing disorder [None]
  - Impulsive behaviour [None]
  - Seizure [None]
  - Asocial behaviour [None]
  - Autism spectrum disorder [None]
  - Aggression [None]
  - Attention deficit hyperactivity disorder [None]
  - Feeling abnormal [None]

NARRATIVE: CASE EVENT DATE: 20180101
